FAERS Safety Report 12614814 (Version 1)
Quarter: 2016Q3

REPORT INFORMATION
  Report Type: Spontaneous
  Country: US (occurrence: US)
  Receive Date: 20160802
  Receipt Date: 20160802
  Transmission Date: 20161109
  Serious: No
  Sender: FDA-Public Use
  Company Number: US-PFIZER INC-2944832

PATIENT
  Age: 75 Year
  Sex: Male

DRUGS (2)
  1. OXALIPLATIN. [Suspect]
     Active Substance: OXALIPLATIN
     Indication: RECTAL CANCER METASTATIC
     Dosage: 150 MG,FREQ:1 WEEK;INTERVAL:2
     Route: 042
     Dates: start: 20150713
  2. DEXTROSE. [Suspect]
     Active Substance: DEXTROSE
     Indication: MEDICATION DILUTION
     Dosage: 500 ML, FREQ: 1 WEEK; INTERVAL: 2.
     Route: 042
     Dates: start: 20150713

REACTIONS (2)
  - Extravasation [Recovered/Resolved]
  - Burning sensation [Recovered/Resolved]

NARRATIVE: CASE EVENT DATE: 20150713
